FAERS Safety Report 6301312-7 (Version None)
Quarter: 2009Q3

REPORT INFORMATION
  Report Type: 
  Country: None (occurrence: None)
  Receive Date: 20090807
  Receipt Date: 20090729
  Transmission Date: 20100115
  Serious: Yes (Other)
  Sender: FDA-Public Use
  Company Number: BE-ASTRAZENECA-2009SE02236

PATIENT
  Age: 14727 Day
  Sex: Female

DRUGS (3)
  1. ZOLADEX [Suspect]
     Indication: BREAST CANCER
     Route: 058
     Dates: start: 20080101
  2. ZOLADEX [Suspect]
     Indication: MENSTRUATION IRREGULAR
     Route: 058
     Dates: start: 20080101
  3. NOLVADEX [Suspect]
     Indication: BREAST CANCER
     Route: 048
     Dates: start: 20090201

REACTIONS (1)
  - JUGULAR VEIN THROMBOSIS [None]
